FAERS Safety Report 12410202 (Version 1)
Quarter: 2016Q2

REPORT INFORMATION
  Report Type: Spontaneous
  Country: US (occurrence: None)
  Receive Date: 20160526
  Receipt Date: 20160526
  Transmission Date: 20160815
  Serious: No
  Sender: FDA-Public Use
  Company Number: None

PATIENT
  Age: 48 Year
  Sex: Female
  Weight: 90.72 kg

DRUGS (9)
  1. AMOXICILLIN. [Suspect]
     Active Substance: AMOXICILLIN
     Indication: ARTHROPOD BITE
     Route: 048
     Dates: start: 20160523, end: 20160524
  2. MAGNESIUM [Concomitant]
     Active Substance: MAGNESIUM
  3. IODORAL [Concomitant]
     Active Substance: IODINE\POTASSIUM IODIDE
  4. CHASTEBERRY VITEX [Concomitant]
  5. ZINC [Concomitant]
     Active Substance: ZINC\ZINC CHLORIDE
  6. CITALOPRAM [Concomitant]
     Active Substance: CITALOPRAM HYDROBROMIDE
  7. LIFE EXTENSION MULTI-VITAMIN MULTI9M,INERAL SUPPLEMENT [Concomitant]
  8. GINKO BILOBA [Concomitant]
     Active Substance: GINKGO
  9. VITAMIN C [Concomitant]
     Active Substance: ASCORBIC ACID

REACTIONS (7)
  - Diarrhoea [None]
  - Fatigue [None]
  - Dizziness [None]
  - Abdominal pain upper [None]
  - Drug hypersensitivity [None]
  - Agitation [None]
  - Headache [None]

NARRATIVE: CASE EVENT DATE: 20160524
